FAERS Safety Report 23380991 (Version 7)
Quarter: 2024Q4

REPORT INFORMATION
  Report Type: Report from Study
  Country: CN (occurrence: CN)
  Receive Date: 20240109
  Receipt Date: 20241211
  Transmission Date: 20250115
  Serious: Yes (Other)
  Sender: TAKEDA
  Company Number: CN-TAKEDA-2024TUS001138

PATIENT
  Age: 81 Year
  Sex: Female
  Weight: 49 kg

DRUGS (2)
  1. IXAZOMIB [Suspect]
     Active Substance: IXAZOMIB
     Indication: Plasma cell myeloma
     Dosage: UNK UNK, 1/WEEK
     Dates: start: 20230810, end: 202309
  2. AMLODIPINE BESYLATE [Concomitant]
     Active Substance: AMLODIPINE BESYLATE
     Indication: Hypertension
     Dosage: 5 MILLIGRAM, QD
     Dates: start: 2000

REACTIONS (3)
  - Pneumonia [Recovering/Resolving]
  - Abdominal distension [Recovering/Resolving]
  - Off label use [Recovering/Resolving]

NARRATIVE: CASE EVENT DATE: 20230801
